FAERS Safety Report 10254257 (Version 1)
Quarter: 2014Q2

REPORT INFORMATION
  Report Type: Spontaneous
  Country: US (occurrence: US)
  Receive Date: 20140624
  Receipt Date: 20140624
  Transmission Date: 20141212
  Serious: Yes (Other)
  Sender: FDA-Public Use
  Company Number: US-ROCHE-1423259

PATIENT
  Age: 57 Year
  Sex: Male
  Weight: 85.81 kg

DRUGS (7)
  1. XOLAIR [Suspect]
     Indication: ASTHMA
     Route: 058
     Dates: start: 20140618
  2. SINGULAIR [Concomitant]
     Route: 048
  3. LOSARTAN POTASSIUM [Concomitant]
     Indication: HYPERTENSION
     Route: 048
  4. IBUPROFEN [Concomitant]
     Route: 048
  5. ASPIRIN EC [Concomitant]
     Route: 048
  6. SYMBICORT [Concomitant]
     Indication: ASTHMA
     Route: 055
  7. PRILOSEC [Concomitant]
     Route: 048

REACTIONS (3)
  - Rash erythematous [Not Recovered/Not Resolved]
  - Nausea [Not Recovered/Not Resolved]
  - Blood pressure fluctuation [Not Recovered/Not Resolved]
